FAERS Safety Report 7910835-6 (Version None)
Quarter: 2011Q4

REPORT INFORMATION
  Report Type: 
  Country: None (occurrence: None)
  Receive Date: 20111114
  Receipt Date: 20111102
  Transmission Date: 20120403
  Serious: Yes (Other)
  Sender: FDA-Public Use
  Company Number: US-BIOGENIDEC-2011BI035938

PATIENT
  Age: 42 Year
  Sex: Female

DRUGS (1)
  1. TYSABRI [Suspect]
     Indication: MULTIPLE SCLEROSIS
     Route: 042
     Dates: start: 20091001, end: 20110816

REACTIONS (4)
  - ASTHENIA [None]
  - PARVOVIRUS INFECTION [None]
  - HAEMOLYTIC ANAEMIA [None]
  - RETICULOCYTE COUNT DECREASED [None]
